FAERS Safety Report 8574429-4 (Version None)
Quarter: 2012Q3

REPORT INFORMATION
  Report Type: 
  Country: None (occurrence: None)
  Receive Date: 20120806
  Receipt Date: 20120730
  Transmission Date: 20120928
  Serious: Yes (Hospitalization)
  Sender: FDA-Public Use
  Company Number: US-ABBOTT-12P-163-0962063-00

PATIENT
  Sex: Male
  Weight: 99.88 kg

DRUGS (5)
  1. METHOTREXATE [Concomitant]
     Indication: RHEUMATOID ARTHRITIS
     Route: 050
  2. LISINOPRIL [Concomitant]
     Indication: BLOOD PRESSURE
  3. CALCIUM +D [Concomitant]
     Indication: MINERAL SUPPLEMENTATION
     Dosage: 600/400 TWO TABLETS DAILY
  4. FOLIC ACID [Concomitant]
     Indication: RHEUMATOID ARTHRITIS
  5. HUMIRA [Suspect]
     Indication: RHEUMATOID ARTHRITIS
     Dosage: THE WIFE DID NOT HAVE ANY HUMIRA LOT NUMBERS AVAILABLE
     Route: 058

REACTIONS (2)
  - PYREXIA [None]
  - WEIGHT DECREASED [None]
